FAERS Safety Report 9085292 (Version 1)
Quarter: 2013Q1

REPORT INFORMATION
  Report Type: Report from Study
  Country: PH (occurrence: PH)
  Receive Date: 20130130
  Receipt Date: 20130130
  Transmission Date: 20140127
  Serious: Yes (Other)
  Sender: FDA-Public Use
  Company Number: PH-UCBSA-076638

PATIENT
  Sex: Male
  Weight: 3.58 kg

DRUGS (3)
  1. LEVETIRACETAM [Suspect]
     Indication: EPILEPSY
     Dosage: 500-1000 MG
     Route: 050
     Dates: start: 2008, end: 2008
  2. CARBAMAZEPINE [Concomitant]
     Indication: EPILEPSY
     Route: 050
     Dates: start: 2008, end: 2008
  3. LAMOTRIGINE [Concomitant]
     Indication: EPILEPSY
     Route: 064
     Dates: start: 2008, end: 2008

REACTIONS (2)
  - Premature baby [Unknown]
  - Exposure via father [Recovered/Resolved]
